FAERS Safety Report 25080887 (Version 1)
Quarter: 2025Q1

REPORT INFORMATION
  Report Type: Spontaneous
  Country: SE (occurrence: SE)
  Receive Date: 20250315
  Receipt Date: 20250315
  Transmission Date: 20250409
  Serious: Yes (Hospitalization, Other)
  Sender: ACCORD
  Company Number: None

PATIENT
  Age: 86 Year
  Sex: Male

DRUGS (17)
  1. EZETIMIBE [Suspect]
     Active Substance: EZETIMIBE
     Indication: Product used for unknown indication
  2. ATORVASTATIN CALCIUM [Suspect]
     Active Substance: ATORVASTATIN CALCIUM
     Indication: Product used for unknown indication
  3. CANDESARTAN [Suspect]
     Active Substance: CANDESARTAN
     Indication: Cardiac failure
  4. EDOXABAN [Suspect]
     Active Substance: EDOXABAN
     Indication: Product used for unknown indication
  5. MAGNESIUM HYDROXIDE [Suspect]
     Active Substance: MAGNESIUM HYDROXIDE
     Indication: Muscle spasms
     Dosage: 1 DOSAGE FORM, BID (1 TABLET IN THE MORNING AND ONE IN THE EVENING)
  6. DAPAGLIFLOZIN [Suspect]
     Active Substance: DAPAGLIFLOZIN
     Indication: Cardiac failure
  7. CALCIUM CARBONATE [Suspect]
     Active Substance: CALCIUM CARBONATE
     Indication: Calcium deficiency
     Dosage: 2 DOSAGE FORM, QD, STRENGTH: 500 MG
  8. METOPROLOL [Suspect]
     Active Substance: METOPROLOL
     Indication: Product used for unknown indication
  9. NITROLINGUAL [Suspect]
     Active Substance: NITROGLYCERIN
     Indication: Chest pain
  10. ACETAMINOPHEN [Concomitant]
     Active Substance: ACETAMINOPHEN
  11. B12 [Concomitant]
  12. GABAPENTIN [Concomitant]
     Active Substance: GABAPENTIN
  13. Furix [Concomitant]
  14. LINAGLIPTIN [Concomitant]
     Active Substance: LINAGLIPTIN
     Indication: Diabetes mellitus
  15. ZOLPIDEM [Concomitant]
     Active Substance: ZOLPIDEM TARTRATE
     Indication: Insomnia
  16. CALCIUM CARBONATE [Suspect]
     Active Substance: CALCIUM CARBONATE
     Indication: Calcium deficiency
     Dosage: 2 DOSAGE FORM
  17. MAGNESIUM HYDROXIDE [Suspect]
     Active Substance: MAGNESIUM HYDROXIDE
     Indication: Muscle spasms
     Dosage: 2 DOSAGE FORM, BID (2 TABLETS A DAY, ONE IN THE MORNING AND ONE IN EVENING)
     Dates: end: 20250112

REACTIONS (10)
  - Hospitalisation [Recovered/Resolved]
  - Mycoplasma infection [Unknown]
  - Pneumonia [Unknown]
  - Palpitations [Not Recovered/Not Resolved]
  - Tremor [Unknown]
  - Drug ineffective [Unknown]
  - Diarrhoea [Not Recovered/Not Resolved]
  - Overdose [Unknown]
  - Off label use [Unknown]
  - Walking aid user [Unknown]
